FAERS Safety Report 19399018 (Version 1)
Quarter: 2021Q2

REPORT INFORMATION
  Report Type: Spontaneous
  Country: US (occurrence: US)
  Receive Date: 20210610
  Receipt Date: 20210610
  Transmission Date: 20210717
  Serious: Yes (Other)
  Sender: FDA-Public Use
  Company Number: US-HIKMA PHARMACEUTICALS USA INC.-US-H14001-21-02672

PATIENT
  Age: 59 Year
  Sex: Female

DRUGS (5)
  1. ANTIBIOTICS [Concomitant]
     Active Substance: UNSPECIFIED INGREDIENT
     Indication: PNEUMONIA
     Dosage: UNKNOWN
     Route: 065
  2. DOPAMINE [Suspect]
     Active Substance: DOPAMINE HYDROCHLORIDE
     Indication: PULMONARY HYPERTENSION
     Dosage: UNKNOWN
     Route: 065
  3. FUROSEMIDE. [Suspect]
     Active Substance: FUROSEMIDE
     Indication: PULMONARY HYPERTENSION
     Dosage: UNKNOWN
     Route: 065
  4. NOREPINEPHRINE. [Suspect]
     Active Substance: NOREPINEPHRINE
     Indication: PULMONARY HYPERTENSION
     Dosage: UNKNOWN
     Route: 065
  5. BETA?BLOCKERS [Concomitant]
     Indication: ACQUIRED LEFT VENTRICLE OUTFLOW TRACT OBSTRUCTION
     Dosage: UNKNOWN
     Route: 065

REACTIONS (4)
  - Pulmonary oedema [Unknown]
  - Left ventricle outflow tract obstruction [Unknown]
  - Systolic anterior motion of mitral valve [Unknown]
  - Hypertension [Unknown]
